FAERS Safety Report 8806600 (Version 1)
Quarter: 2012Q4

REPORT INFORMATION
  Report Type: 
  Country: US (occurrence: US)
  Receive Date: 20120925
  Receipt Date: 20120925
  Transmission Date: 20130627
  Serious: Yes (Life-Threatening, Hospitalization)
  Sender: FDA-Public Use
  Company Number: US-BAYER-2012-098448

PATIENT
  Age: 18 Year
  Sex: Female
  Weight: 54.42 kg

DRUGS (11)
  1. YAZ [Suspect]
     Indication: DYSMENORRHOEA
     Dosage: UNK
     Dates: start: 201004, end: 201010
  2. YAZ [Suspect]
     Indication: PREMENSTRUAL SYNDROME
  3. GIANVI [Suspect]
     Indication: DYSMENORRHOEA
     Dosage: UNK
     Dates: start: 201005, end: 201008
  4. ZYRTEC [Concomitant]
     Indication: RHINITIS ALLERGIC
     Dosage: 10 mg, daily occasional
     Route: 048
  5. STROMECTOL [Concomitant]
     Dosage: 3 mg, UNK
     Dates: start: 20100813, end: 20100913
  6. PERMETHRIN [Concomitant]
     Dosage: 5 %, UNK
     Dates: start: 20100915
  7. FLUCONAZOLE [Concomitant]
     Dosage: 150 mg, UNK
     Dates: start: 20100919
  8. CLOBETASOL [Concomitant]
     Indication: PSORIASIS
     Dosage: 0.5 %, UNK
     Dates: start: 20100930
  9. CIPROFLOXACIN HCL [Concomitant]
     Dosage: 500 mg, UNK
     Dates: start: 20101015
  10. HYDROCODONE/ACETAMINOPHEN [Concomitant]
     Dosage: 5/325
  11. IRON SULFATE [Concomitant]
     Dosage: 325

REACTIONS (13)
  - Pulmonary embolism [None]
  - Dyspnoea [None]
  - Chest pain [None]
  - Pleurisy [None]
  - Pain in extremity [None]
  - Mental disorder [None]
  - Fear [None]
  - Asthenia [None]
  - Pain [None]
  - Injury [None]
  - Anxiety [None]
  - Pain [None]
  - Pain in extremity [None]
